FAERS Safety Report 8273446-1 (Version None)
Quarter: 2012Q2

REPORT INFORMATION
  Report Type: 
  Country: None (occurrence: None)
  Receive Date: 20120411
  Receipt Date: 20120403
  Transmission Date: 20120825
  Serious: Yes (Hospitalization)
  Sender: FDA-Public Use
  Company Number: US-NOVOPROD-341576

PATIENT
  Age: 14 Year
  Sex: Female
  Weight: 88 kg

DRUGS (3)
  1. VICTOZA [Suspect]
     Indication: TYPE 2 DIABETES MELLITUS
     Dosage: 0.6 MG, QD
     Route: 058
     Dates: start: 20110221, end: 20110928
  2. METFORMIN HCL [Concomitant]
     Dosage: 1000 MG, QD
     Route: 048
  3. YASMIN [Concomitant]
     Indication: PRODUCT USED FOR UNKNOWN INDICATION
     Dosage: UNKNOWN, QD

REACTIONS (1)
  - PANCREATITIS ACUTE [None]
